FAERS Safety Report 9902828 (Version 7)
Quarter: 2014Q2

REPORT INFORMATION
  Report Type: Report from Study
  Country: AU (occurrence: AU)
  Receive Date: 20140217
  Receipt Date: 20140416
  Transmission Date: 20141212
  Serious: Yes (Life-Threatening, Hospitalization, Other)
  Sender: FDA-Public Use
  Company Number: PHHY2014AU007107

PATIENT
  Age: 51 Year
  Sex: Female
  Weight: 72.4 kg

DRUGS (21)
  1. CLOZARIL [Suspect]
     Indication: SCHIZOAFFECTIVE DISORDER
     Dosage: 650 MG, UNK
     Route: 048
     Dates: start: 19951109
  2. CLOZARIL [Suspect]
     Dosage: UNK
  3. CLOZARIL [Suspect]
     Dosage: 400 MG
     Route: 048
     Dates: start: 20101124
  4. CLOZARIL [Suspect]
     Dosage: 550 MG, DAILY (100 MG AT MORNING AND 450 MG AT NIGHT)
     Route: 048
     Dates: start: 20140118
  5. CLOZARIL [Suspect]
     Dosage: 750 MG, QD
     Route: 048
     Dates: end: 20140215
  6. RISPERIDONE [Concomitant]
     Indication: SCHIZOAFFECTIVE DISORDER
     Dosage: 2 MG, BID
     Route: 048
     Dates: start: 20140128
  7. RISPERIDONE [Concomitant]
     Dosage: 6 MG (2 MG AT MORNING, 4 MG AT NIGHT), UNK
     Route: 048
  8. MAGMIN [Concomitant]
     Dosage: 1 DF, BID
     Route: 048
     Dates: start: 20140128
  9. ROXITHROMYCIN [Concomitant]
     Dosage: 300 MG, AT NIGHT
     Route: 048
     Dates: start: 20140128
  10. PIPTAZ [Concomitant]
     Dosage: 4.5 G, TID
     Route: 042
     Dates: start: 20140128
  11. NITRO PATCH [Concomitant]
     Dosage: 21 MG, QD
     Route: 061
     Dates: start: 20140128
  12. SODIUM CHLORIDE [Concomitant]
     Dosage: 2 DF, TID
     Route: 048
     Dates: start: 20140128
  13. METFORMIN [Concomitant]
     Dosage: 500 MG, AT MORNING
     Route: 048
     Dates: start: 20140128
  14. MANICOL [Concomitant]
     Dosage: 2 DF, BID
     Route: 048
     Dates: start: 20140128
  15. LACTULOSE [Concomitant]
     Dosage: 20 ML, BID
     Route: 048
     Dates: start: 20140128
  16. EPILEM [Concomitant]
     Dosage: 500 MG, BID
     Route: 048
     Dates: start: 20140128
  17. FERROUS SULPHATE [Concomitant]
     Dosage: 1 DF, AT MANE
     Route: 048
     Dates: start: 20140128
  18. CANDESARTAN [Concomitant]
     Dosage: 4 MG, MANE
     Route: 048
     Dates: start: 20140128
  19. SYMBICORT [Concomitant]
     Dosage: 1 DF, BID
     Route: 055
     Dates: start: 20140128
  20. DIAZEPAM [Concomitant]
     Indication: ANXIETY
     Dosage: 5 MG, AT NIGHT
     Route: 048
     Dates: start: 20140128
  21. SODIUM VALPROATE [Concomitant]
     Indication: SCHIZOAFFECTIVE DISORDER
     Dosage: 500 MG, BID
     Route: 048

REACTIONS (28)
  - Precursor B-lymphoblastic lymphoma [Unknown]
  - Blast cells present [Unknown]
  - Acute lymphocytic leukaemia [Not Recovered/Not Resolved]
  - Pneumonia [Recovering/Resolving]
  - Malaise [Recovering/Resolving]
  - Disinhibition [Recovered/Resolved]
  - Atonic seizures [Recovered/Resolved]
  - Lethargy [Unknown]
  - Loss of consciousness [Unknown]
  - Convulsion [Unknown]
  - Muscle rigidity [Unknown]
  - Hypotonia [Unknown]
  - Simple partial seizures [Recovered/Resolved]
  - Dyskinesia [Unknown]
  - Muscle spasms [Unknown]
  - Toxicity to various agents [Unknown]
  - Viral infection [Unknown]
  - Pancytopenia [Unknown]
  - Normochromic normocytic anaemia [Unknown]
  - Haemoglobin decreased [Unknown]
  - Thrombocytopenia [Not Recovered/Not Resolved]
  - Haematocrit decreased [Unknown]
  - Red blood cell count decreased [Unknown]
  - White blood cell count decreased [Unknown]
  - Lymphocyte count decreased [Unknown]
  - Neutropenia [Unknown]
  - Monocyte count decreased [Unknown]
  - Overdose [Unknown]
